FAERS Safety Report 8296327-6 (Version None)
Quarter: 2012Q2

REPORT INFORMATION
  Report Type: 
  Country: None (occurrence: None)
  Receive Date: 20120418
  Receipt Date: 20120413
  Transmission Date: 20120825
  Serious: Yes (Other)
  Sender: FDA-Public Use
  Company Number: US-PFIZER INC-2012092817

PATIENT
  Sex: Female
  Weight: 127 kg

DRUGS (10)
  1. VITAMIN D [Concomitant]
     Indication: VITAMIN SUPPLEMENTATION
     Dosage: UNK
  2. PRISTIQ [Suspect]
     Indication: DEPRESSION
     Dosage: 100 MG, 1X/DAY
     Route: 048
     Dates: start: 20111001, end: 20111201
  3. LYRICA [Suspect]
     Dosage: 50 MG, UNK
     Route: 048
     Dates: start: 20120101, end: 20120101
  4. XANAX [Concomitant]
     Indication: ANXIETY
     Dosage: UNK
  5. ADENINE [Concomitant]
     Indication: VITAMIN SUPPLEMENTATION
     Dosage: UNK
  6. LYRICA [Suspect]
     Indication: FIBROMYALGIA
     Dosage: 25 MG, UNK
     Route: 048
     Dates: start: 20120301
  7. NEURONTIN [Suspect]
     Indication: FIBROMYALGIA
     Dosage: 100 MG, 3X/DAY
     Route: 048
     Dates: start: 20120201
  8. NEURONTIN [Suspect]
     Dosage: 300 MG, 3X/DAY
     Route: 048
     Dates: start: 20120101, end: 20120301
  9. LYRICA [Suspect]
     Dosage: 75 MG, UNK
     Dates: start: 20120409
  10. PERCOCET [Concomitant]
     Indication: HEAD INJURY
     Dosage: UNK

REACTIONS (12)
  - CONTUSION [None]
  - ARTHRALGIA [None]
  - BLISTER [None]
  - MUSCULOSKELETAL STIFFNESS [None]
  - PYREXIA [None]
  - MUSCLE SPASMS [None]
  - NEUROPATHY PERIPHERAL [None]
  - JOINT RANGE OF MOTION DECREASED [None]
  - PAIN [None]
  - CONDITION AGGRAVATED [None]
  - MUSCLE TWITCHING [None]
  - NECK PAIN [None]
